FAERS Safety Report 6453738-9 (Version None)
Quarter: 2009Q4

REPORT INFORMATION
  Report Type: 
  Country: None (occurrence: None)
  Receive Date: 20091124
  Receipt Date: 20090924
  Transmission Date: 20100525
  Serious: No
  Sender: FDA-Public Use
  Company Number: US-BRISTOL-MYERS SQUIBB COMPANY-14791529

PATIENT
  Age: 50 Year
  Sex: Male
  Weight: 113 kg

DRUGS (1)
  1. ONGLYZA TABS [Suspect]
     Dates: start: 20090907, end: 20090913

REACTIONS (2)
  - ARTHRALGIA [None]
  - GAIT DISTURBANCE [None]
